FAERS Safety Report 13871341 (Version 1)
Quarter: 2017Q3

REPORT INFORMATION
  Report Type: Spontaneous
  Country: CN (occurrence: CN)
  Receive Date: 20170816
  Receipt Date: 20170816
  Transmission Date: 20171127
  Serious: Yes (Other)
  Sender: FDA-Public Use
  Company Number: CN-BAYER-2017-149748

PATIENT
  Age: 75 Year
  Sex: Male

DRUGS (2)
  1. STIVARGA [Suspect]
     Active Substance: REGORAFENIB
     Dosage: UNK
  2. STIVARGA [Suspect]
     Active Substance: REGORAFENIB
     Dosage: 120 MG DAILY DOSE

REACTIONS (4)
  - Alanine aminotransferase increased [None]
  - Blood bilirubin increased [None]
  - Performance status decreased [None]
  - Aspartate aminotransferase increased [None]
